FAERS Safety Report 9821960 (Version 1)
Quarter: 2014Q1

REPORT INFORMATION
  Report Type: Report from Study
  Country: US (occurrence: US)
  Receive Date: 20140116
  Receipt Date: 20140116
  Transmission Date: 20141002
  Serious: Yes (Hospitalization, Other)
  Sender: FDA-Public Use
  Company Number: US-ABBVIE-14P-163-1186977-00

PATIENT
  Age: 70 Year
  Sex: Male
  Weight: 118.04 kg

DRUGS (2)
  1. HUMIRA [Suspect]
     Indication: CROHN^S DISEASE
     Route: 058
  2. HUMIRA [Suspect]
     Route: 058
     Dates: end: 20111111

REACTIONS (5)
  - Gastrointestinal disorder [Recovered/Resolved]
  - Intestinal resection [Recovered/Resolved]
  - Polyp [Recovered/Resolved]
  - Crohn^s disease [Recovered/Resolved]
  - Precancerous cells present [Recovered/Resolved]
